FAERS Safety Report 6162282-8 (Version None)
Quarter: 2009Q2

REPORT INFORMATION
  Report Type: 
  Country: None (occurrence: None)
  Receive Date: 20090421
  Receipt Date: 20090409
  Transmission Date: 20091009
  Serious: Yes (Other)
  Sender: FDA-Public Use
  Company Number: GB-WYE-G03503709

PATIENT
  Sex: Female

DRUGS (1)
  1. PREMIQUE CYCLE [Suspect]
     Dosage: UNKNOWN
     Route: 048

REACTIONS (1)
  - EPILEPSY [None]
